FAERS Safety Report 8765659 (Version 2)
Quarter: 2012Q4

REPORT INFORMATION
  Report Type: 
  Country: AU (occurrence: AU)
  Receive Date: 20120904
  Receipt Date: 20120914
  Transmission Date: 20130627
  Serious: Yes (Hospitalization)
  Sender: FDA-Public Use
  Company Number: PHHY2012AU075745

PATIENT
  Age: 27 Year
  Sex: Male

DRUGS (1)
  1. CLOZARIL [Suspect]
     Dosage: 900 mg, UNK
     Route: 048
     Dates: start: 20040714

REACTIONS (2)
  - Drug abuse [Recovering/Resolving]
  - Substance abuse [None]
